FAERS Safety Report 6568841-2 (Version None)
Quarter: 2010Q1

REPORT INFORMATION
  Report Type: 
  Country: None (occurrence: None)
  Receive Date: 20100203
  Receipt Date: 20090805
  Transmission Date: 20100710
  Serious: No
  Sender: FDA-Public Use
  Company Number: US-ABBOTT-09P-163-0582150-00

PATIENT
  Sex: Female
  Weight: 65.83 kg

DRUGS (2)
  1. TRICOR [Suspect]
     Indication: BLOOD GLUCOSE INCREASED
     Route: 048
     Dates: start: 20070101, end: 20090301
  2. LEVOTHYROXINE SODIUM [Suspect]
     Indication: HYPOTHYROIDISM
     Route: 048
     Dates: start: 19990101, end: 20050101

REACTIONS (5)
  - FATIGUE [None]
  - HEADACHE [None]
  - LETHARGY [None]
  - NERVOUSNESS [None]
  - PALPITATIONS [None]
